FAERS Safety Report 13434253 (Version 1)
Quarter: 2017Q2

REPORT INFORMATION
  Report Type: Spontaneous
  Country: US (occurrence: US)
  Receive Date: 20170413
  Receipt Date: 20170413
  Transmission Date: 20170830
  Serious: Yes (Death)
  Sender: FDA-Public Use
  Company Number: US-BEH-2017079589

PATIENT
  Age: 22 Year
  Sex: Male
  Weight: 36.28 kg

DRUGS (22)
  1. VITAMIN D                          /00107901/ [Concomitant]
     Active Substance: ERGOCALCIFEROL
  2. CYCLOPHOSPHAMIDE. [Concomitant]
     Active Substance: CYCLOPHOSPHAMIDE
  3. RITUXAN [Concomitant]
     Active Substance: RITUXIMAB
  4. ATROVENT [Concomitant]
     Active Substance: IPRATROPIUM BROMIDE
  5. MELATONIN [Concomitant]
     Active Substance: MELATONIN
  6. VANCOMYCIN [Concomitant]
     Active Substance: VANCOMYCIN
  7. PREVACID [Concomitant]
     Active Substance: LANSOPRAZOLE
  8. PRIVIGEN [Suspect]
     Active Substance: HUMAN IMMUNOGLOBULIN G
     Dosage: UNK
     Route: 042
  9. SODIUM CHLORIDE. [Concomitant]
     Active Substance: SODIUM CHLORIDE
  10. BACTRIM DS [Concomitant]
     Active Substance: SULFAMETHOXAZOLE\TRIMETHOPRIM
  11. PRIVIGEN [Suspect]
     Active Substance: HUMAN IMMUNOGLOBULIN G
     Dosage: UNK
     Route: 042
  12. FLOVENT [Concomitant]
     Active Substance: FLUTICASONE PROPIONATE
  13. DIPHENHYDRAMINE. [Concomitant]
     Active Substance: DIPHENHYDRAMINE
  14. EPIPEN [Concomitant]
     Active Substance: EPINEPHRINE
  15. ACETAMINOPHEN. [Concomitant]
     Active Substance: ACETAMINOPHEN
  16. FLUOCINONIDE. [Concomitant]
     Active Substance: FLUOCINONIDE
  17. ERGOCALCIFEROLUM [Concomitant]
  18. GLUCAGON. [Concomitant]
     Active Substance: GLUCAGON
  19. PRIVIGEN [Suspect]
     Active Substance: HUMAN IMMUNOGLOBULIN G
     Indication: BLOOD IMMUNOGLOBULIN G DECREASED
     Dosage: 20 G, QMT
     Route: 042
     Dates: start: 20111027
  20. GABAPENTIN. [Concomitant]
     Active Substance: GABAPENTIN
  21. PULMOZYME [Concomitant]
     Active Substance: DORNASE ALFA
  22. VINCRISTINE SULFATE. [Concomitant]
     Active Substance: VINCRISTINE SULFATE

REACTIONS (1)
  - Death [Fatal]

NARRATIVE: CASE EVENT DATE: 20170408
